FAERS Safety Report 9010665 (Version 2)
Quarter: 2013Q1

REPORT INFORMATION
  Report Type: Spontaneous
  Country: CN (occurrence: CN)
  Receive Date: 20130109
  Receipt Date: 20130116
  Transmission Date: 20140127
  Serious: No
  Sender: FDA-Public Use
  Company Number: CN-PFIZER INC-2013008758

PATIENT
  Age: 45 Year
  Sex: Male
  Weight: 74 kg

DRUGS (1)
  1. MS CONTIN [Suspect]
     Indication: ANALGESIC THERAPY
     Dosage: 30 MG, 2X/DAY
     Route: 048
     Dates: start: 20091122, end: 20091124

REACTIONS (3)
  - Restlessness [Recovered/Resolved]
  - Insomnia [Recovered/Resolved]
  - Agitation [Recovered/Resolved]
